FAERS Safety Report 13415398 (Version 1)
Quarter: 2017Q2

REPORT INFORMATION
  Report Type: Spontaneous
  Country: US (occurrence: US)
  Receive Date: 20170406
  Receipt Date: 20170406
  Transmission Date: 20170830
  Serious: Yes (Hospitalization, Other)
  Sender: FDA-Public Use
  Company Number: US-ZYDUS-014508

PATIENT
  Age: 42 Year
  Sex: Male

DRUGS (12)
  1. HYDROMORPHONE/HYDROMORPHONE HYDROCHLORIDE [Suspect]
     Active Substance: HYDROMORPHONE
     Indication: PAIN
     Dosage: (UP TO 60 MG/H WITH MAXIMUM PCA DOSING)
     Route: 042
  2. HYDROMORPHONE/HYDROMORPHONE HYDROCHLORIDE [Suspect]
     Active Substance: HYDROMORPHONE
     Indication: PAIN
     Dosage: (UP TO 60 MG/H WITH MAXIMUM PCA DOSING)
     Route: 042
  3. DEXAMETHASONE. [Concomitant]
     Active Substance: DEXAMETHASONE
     Indication: PRODUCT USED FOR UNKNOWN INDICATION
     Route: 048
  4. DEXAMETHASONE. [Concomitant]
     Active Substance: DEXAMETHASONE
     Indication: PRODUCT USED FOR UNKNOWN INDICATION
     Route: 048
  5. DEXAMETHASONE. [Concomitant]
     Active Substance: DEXAMETHASONE
     Indication: PRODUCT USED FOR UNKNOWN INDICATION
     Route: 048
  6. MORPHINE/MORPHINE HYDROCHLORIDE/MORPHINE SULFATE/MORPHINE TARTRATE [Suspect]
     Active Substance: MORPHINE\MORPHINE HYDROCHLORIDE\MORPHINE SULFATE\MORPHINE TARTRATE
     Indication: PAIN
     Route: 037
  7. METHADONE [Suspect]
     Active Substance: METHADONE HYDROCHLORIDE
     Indication: PAIN
     Route: 048
  8. METHADONE [Suspect]
     Active Substance: METHADONE HYDROCHLORIDE
     Indication: PAIN
     Route: 048
  9. HYDROMORPHONE/HYDROMORPHONE HYDROCHLORIDE [Suspect]
     Active Substance: HYDROMORPHONE
     Indication: PAIN
     Dosage: (UP TO 60 MG/H WITH MAXIMUM PCA DOSING)
     Route: 042
  10. ALPRAZOLAM. [Concomitant]
     Active Substance: ALPRAZOLAM
     Indication: ANXIETY
     Route: 065
  11. HYDROMORPHONE/HYDROMORPHONE HYDROCHLORIDE [Suspect]
     Active Substance: HYDROMORPHONE
     Indication: PAIN
     Dosage: (UP TO 60 MG/H WITH MAXIMUM PCA DOSING)
     Route: 042
  12. SERTRALINE [Concomitant]
     Active Substance: SERTRALINE HYDROCHLORIDE
     Indication: DEPRESSION
     Route: 065

REACTIONS (24)
  - Fall [Recovered/Resolved]
  - Aggression [Recovered/Resolved]
  - Confusional state [Recovered/Resolved]
  - Chromaturia [Unknown]
  - Allodynia [Unknown]
  - Dehydration [Unknown]
  - Dysphagia [Unknown]
  - Neurotoxicity [Recovered/Resolved]
  - Dyspnoea [Unknown]
  - Delirium [Recovered/Resolved]
  - Tremor [Recovered/Resolved]
  - Miosis [Unknown]
  - Hypoxia [Unknown]
  - Fatigue [Recovered/Resolved]
  - Hallucination, visual [Recovered/Resolved]
  - Urine output decreased [Unknown]
  - Pyrexia [Unknown]
  - Renal failure [Unknown]
  - Asthenia [Recovered/Resolved]
  - Pain [Recovered/Resolved]
  - Hyperhidrosis [Unknown]
  - Agitation [Recovered/Resolved]
  - Myoclonus [Recovered/Resolved]
  - Mental impairment [Recovered/Resolved]
